FAERS Safety Report 6021781-X (Version None)
Quarter: 2008Q4

REPORT INFORMATION
  Report Type: 
  Country: None (occurrence: None)
  Receive Date: 20081229
  Receipt Date: 20081218
  Transmission Date: 20090506
  Serious: Yes (Hospitalization)
  Sender: FDA-Public Use
  Company Number: FR-AVENTIS-200812427FR

PATIENT
  Age: 83 Year
  Sex: Male

DRUGS (4)
  1. DAONIL [Suspect]
     Route: 048
     Dates: start: 19960101
  2. AMARYL [Suspect]
     Route: 048
     Dates: start: 19960101
  3. ALDACTONE [Suspect]
     Route: 048
     Dates: start: 19900101
  4. ZOCOR [Suspect]
     Route: 048
     Dates: start: 20040101

REACTIONS (1)
  - PEMPHIGOID [None]
